FAERS Safety Report 7905145-7 (Version None)
Quarter: 2011Q4

REPORT INFORMATION
  Report Type: 
  Country: None (occurrence: None)
  Receive Date: 20111109
  Receipt Date: 20111104
  Transmission Date: 20120403
  Serious: Yes (Life-Threatening, Hospitalization, Other)
  Sender: FDA-Public Use
  Company Number: US-AMGEN-QUU410076

PATIENT
  Age: 29 Year
  Sex: Female
  Weight: 69.841 kg

DRUGS (20)
  1. CORTICOSTEROIDS [Concomitant]
     Indication: IDIOPATHIC THROMBOCYTOPENIC PURPURA
  2. LISINOPRIL [Concomitant]
     Dosage: 10 MG, QD
  3. TOPAMAX [Concomitant]
     Dosage: 50 MG, UNK
  4. VICODIN [Concomitant]
  5. PREDNISONE [Concomitant]
     Indication: PRODUCT USED FOR UNKNOWN INDICATION
     Dosage: 10 MG, QD
  6. SOLU-MEDROL [Concomitant]
  7. ATIVAN [Concomitant]
     Dosage: 0.5 MG, PRN
  8. IVIGLOB-EX [Concomitant]
     Indication: IDIOPATHIC THROMBOCYTOPENIC PURPURA
  9. RITUXIMAB [Concomitant]
     Indication: IDIOPATHIC THROMBOCYTOPENIC PURPURA
  10. FERROUS SULFATE TAB [Concomitant]
     Dosage: 325 MG, BID
  11. COUMADIN [Concomitant]
     Indication: DEEP VEIN THROMBOSIS
  12. DANAZOL [Concomitant]
  13. COMPAZINE [Concomitant]
     Indication: NAUSEA
     Dosage: 30 MG, UNK
  14. PROCARDIA XL [Concomitant]
     Dosage: 30 MG, UNK
  15. ANZEMET [Concomitant]
     Indication: NAUSEA
     Dosage: 100 MG, PRN
  16. NPLATE [Suspect]
     Indication: IDIOPATHIC THROMBOCYTOPENIC PURPURA
     Dosage: 8 MUG/KG, UNK
     Dates: start: 20090101
  17. AMBIEN [Concomitant]
     Dosage: 10 MG, PRN
  18. ZANTAC                             /00550801/ [Concomitant]
     Indication: PRODUCT USED FOR UNKNOWN INDICATION
     Dosage: 150 MG, UNK
  19. PRILOSEC [Concomitant]
     Dosage: 40 MG, UNK
  20. ZOLPIDEM [Concomitant]
     Dosage: 10 MG, UNK

REACTIONS (10)
  - DEEP VEIN THROMBOSIS [None]
  - CEREBROVASCULAR ACCIDENT [None]
  - THERAPEUTIC RESPONSE DECREASED [None]
  - PLATELET COUNT DECREASED [None]
  - EMBOLISM VENOUS [None]
  - SCLERODERMA [None]
  - ABORTION SPONTANEOUS [None]
  - INFERTILITY FEMALE [None]
  - VIITH NERVE PARALYSIS [None]
  - VAGINAL HAEMORRHAGE [None]
